FAERS Safety Report 8260271-0 (Version None)
Quarter: 2012Q2

REPORT INFORMATION
  Report Type: 
  Country: None (occurrence: None)
  Receive Date: 20120404
  Receipt Date: 20120323
  Transmission Date: 20120825
  Serious: Yes (Hospitalization)
  Sender: FDA-Public Use
  Company Number: NL-ROCHE-1011138

PATIENT
  Sex: Female
  Weight: 61 kg

DRUGS (10)
  1. VINCRISTINE [Suspect]
     Indication: DIFFUSE LARGE B-CELL LYMPHOMA
     Route: 042
     Dates: start: 20110822
  2. COTRIMOXIN [Concomitant]
     Indication: PROPHYLAXIS
     Route: 048
     Dates: start: 20110530, end: 20111107
  3. PREDNISONE [Suspect]
     Indication: DIFFUSE LARGE B-CELL LYMPHOMA
     Dosage: 2X50 MG, LAST DOSE PRIOR TO SAE: 23/SEP/2011
     Route: 048
     Dates: start: 20110919
  4. DOXORUBICIN HYDROCHLORIDE [Suspect]
     Indication: DIFFUSE LARGE B-CELL LYMPHOMA
     Dosage: LAST DOSE PRIOR TO SAE: 19/SEP/2011
     Route: 042
     Dates: start: 20110919
  5. VINBLASTINE SULFATE [Suspect]
     Indication: DIFFUSE LARGE B-CELL LYMPHOMA
     Dosage: LAST DOSE PRIOR TO SAE: 19/SEP/2011
     Route: 042
     Dates: start: 20110919
  6. ISONIAZID [Concomitant]
     Indication: PROPHYLAXIS
     Route: 048
     Dates: start: 20110530, end: 20111107
  7. FILGRASTIM [Suspect]
     Indication: DIFFUSE LARGE B-CELL LYMPHOMA
     Dosage: LAST DOSE PRIOR TO SAE: 20/SEP/2011
     Route: 058
     Dates: start: 20110920
  8. MABTHERA [Suspect]
     Indication: DIFFUSE LARGE B-CELL LYMPHOMA
     Dosage: LAST DOSE PRIOR TO SAE: 19/SEP/2011
     Route: 042
     Dates: start: 20110919
  9. CYCLOPHOSPHAMIDE [Suspect]
     Indication: DIFFUSE LARGE B-CELL LYMPHOMA
     Dosage: LAST DOSE PRIOR TO SAE: 19/SEP/2011
     Route: 042
     Dates: start: 20110919
  10. VALACICLOVIR [Concomitant]
     Indication: PROPHYLAXIS
     Dosage: 2X500 MG
     Route: 048
     Dates: start: 20110530, end: 20111107

REACTIONS (1)
  - CARDIOMYOPATHY [None]
